FAERS Safety Report 20333595 (Version 12)
Quarter: 2023Q1

REPORT INFORMATION
  Report Type: Spontaneous
  Country: US (occurrence: US)
  Receive Date: 20220113
  Receipt Date: 20230130
  Transmission Date: 20230417
  Serious: Yes (Death, Hospitalization, Other)
  Sender: FDA-Public Use
  Company Number: US-PFIZER INC-202200024180

PATIENT
  Age: 74 Year
  Sex: Male
  Weight: 95.692 kg

DRUGS (3)
  1. XELJANZ [Suspect]
     Active Substance: TOFACITINIB CITRATE
     Indication: Colitis ulcerative
     Dosage: 5 MG
     Dates: end: 2021
  2. XELJANZ [Suspect]
     Active Substance: TOFACITINIB CITRATE
     Dosage: 5 MG, 2X/DAY
     Dates: start: 2022, end: 202212
  3. SULFASALAZINE [Concomitant]
     Active Substance: SULFASALAZINE
     Indication: Colitis ulcerative
     Dosage: 1000 MG, 3X/DAY (500MG TWO TABLETS THREE TIMES A DAY BY MOUTH)
     Route: 048

REACTIONS (10)
  - Pneumonia aspiration [Fatal]
  - Thrombosis [Fatal]
  - COVID-19 [Fatal]
  - Neoplasm malignant [Unknown]
  - Colitis ulcerative [Unknown]
  - Diarrhoea haemorrhagic [Unknown]
  - Blood pressure increased [Unknown]
  - Stress [Unknown]
  - Feeling abnormal [Unknown]
  - Nervousness [Unknown]

NARRATIVE: CASE EVENT DATE: 20220101
